FAERS Safety Report 18180653 (Version 1)
Quarter: 2020Q3

REPORT INFORMATION
  Report Type: Spontaneous
  Country: US (occurrence: US)
  Receive Date: 20200821
  Receipt Date: 20200821
  Transmission Date: 20201103
  Serious: Yes (Other)
  Sender: FDA-Public Use
  Company Number: NVSC2020US227012

PATIENT
  Sex: Female

DRUGS (1)
  1. RECLAST [Suspect]
     Active Substance: ZOLEDRONIC ACID
     Indication: PRODUCT USED FOR UNKNOWN INDICATION
     Route: 065

REACTIONS (14)
  - Pain in jaw [Unknown]
  - Crying [Unknown]
  - Headache [Unknown]
  - Injection site reaction [Unknown]
  - Loose tooth [Unknown]
  - Insomnia [Unknown]
  - Pain [Unknown]
  - Toxicity to various agents [Unknown]
  - Fear [Unknown]
  - Arthralgia [Unknown]
  - Nausea [Unknown]
  - Mass [Unknown]
  - Pollakiuria [Unknown]
  - Emotional disorder [Unknown]
